FAERS Safety Report 8776255 (Version 2)
Quarter: 2013Q4

REPORT INFORMATION
  Report Type: Spontaneous
  Country: US (occurrence: US)
  Receive Date: 20120910
  Receipt Date: 20131101
  Transmission Date: 20140711
  Serious: No
  Sender: FDA-Public Use
  Company Number: US-009507513-1208USA008701

PATIENT
  Sex: Female

DRUGS (1)
  1. NUVARING [Suspect]
     Dosage: 1 RING FOR 3 WEEKS, FOLLOWED BY A WEEK (OF RING) FREE INTERVAL.
     Route: 067

REACTIONS (3)
  - Unintended pregnancy [Unknown]
  - Abnormal withdrawal bleeding [Not Recovered/Not Resolved]
  - Inappropriate schedule of drug administration [Unknown]
